FAERS Safety Report 7915460-9 (Version None)
Quarter: 2011Q4

REPORT INFORMATION
  Report Type: 
  Country: None (occurrence: None)
  Receive Date: 20111115
  Receipt Date: 20111102
  Transmission Date: 20120403
  Serious: Yes (Hospitalization)
  Sender: FDA-Public Use
  Company Number: CH-ELI_LILLY_AND_COMPANY-CH201111001998

PATIENT
  Age: 12 Year
  Sex: Male
  Weight: 33.6 kg

DRUGS (1)
  1. FLUOXETINE HYDROCHLORIDE [Suspect]
     Indication: DEPRESSION
     Dosage: 10 MG, UNKNOWN
     Route: 048

REACTIONS (2)
  - DEPRESSION [None]
  - NAUSEA [None]
